FAERS Safety Report 23931857 (Version 1)
Quarter: 2024Q2

REPORT INFORMATION
  Report Type: Spontaneous
  Country: CH (occurrence: CH)
  Receive Date: 20240603
  Receipt Date: 20240603
  Transmission Date: 20240716
  Serious: Yes (Hospitalization, Other)
  Sender: FDA-Public Use
  Company Number: None

PATIENT
  Age: 55 Year
  Sex: Female

DRUGS (9)
  1. CIPROFLOXACIN [Suspect]
     Active Substance: CIPROFLOXACIN
     Indication: Anastomotic leak
     Dosage: PRODUCT, DOSAGE AND DURATION OF TREATMENT UNKNOWN
     Route: 065
     Dates: start: 202308
  2. AMOXICILLIN\CLAVULANATE POTASSIUM [Suspect]
     Active Substance: AMOXICILLIN\CLAVULANATE POTASSIUM
     Indication: Antibiotic prophylaxis
     Dosage: 625 MG,500/125 MG 1-1-1
     Route: 048
     Dates: start: 20231208, end: 20231212
  3. DAFALGAN [Suspect]
     Active Substance: ACETAMINOPHEN
     Indication: Procedural pain
     Dosage: 500 MG,500 MG N/A DOSE EVERY 6 HOUR
     Route: 048
     Dates: start: 20231209, end: 20231212
  4. METRONIDAZOLE [Suspect]
     Active Substance: METRONIDAZOLE
     Indication: Anastomotic leak
     Dosage: PRODUCT, DOSAGE AND DURATION OF TREATMENT UNKNOWN
     Route: 065
     Dates: start: 202308
  5. NOVALGIN (METAMIZOLE SODIUM) [Suspect]
     Active Substance: METAMIZOLE SODIUM
     Indication: Procedural pain
     Dosage: 500 MG, 500 MG N/A DOSE EVERY 6 HOUR
     Route: 048
     Dates: start: 20231209, end: 20231212
  6. PANTOPRAZOLE SODIUM [Suspect]
     Active Substance: PANTOPRAZOLE SODIUM
     Indication: Product used for unknown indication
     Dosage: 20 MG, QD, 20 MG N/A DOSE EVERY 1 DAY
     Route: 048
     Dates: start: 20231208, end: 20231213
  7. PIPERACILLIN SODIUM\TAZOBACTAM SODIUM [Suspect]
     Active Substance: PIPERACILLIN SODIUM\TAZOBACTAM SODIUM
     Indication: Anastomotic leak
     Dosage: 4.5 G N/A DOSE EVERY 8 HOUR
     Route: 042
     Dates: start: 20230716, end: 20230804
  8. BIOTIN MERZ [Concomitant]
     Indication: Product used for unknown indication
     Dosage: 5 MG, 5MG 1-0-0-0, PAUSED DURING HOSPITALISATION, START AND STOP DATE UNKNOWN
     Route: 048
  9. CALCIUM CARBONATE\CHOLECALCIFEROL [Concomitant]
     Active Substance: CALCIUM CARBONATE\CHOLECALCIFEROL
     Indication: Product used for unknown indication
     Dosage: 1 DF, 1-0-0-0, START DATE UNKNOWN, UNKNOWN IF STOPPED, INDICATION UNKNOWN
     Route: 048

REACTIONS (1)
  - Drug-induced liver injury [Recovering/Resolving]

NARRATIVE: CASE EVENT DATE: 20230724
